FAERS Safety Report 6194637-X (Version None)
Quarter: 2009Q2

REPORT INFORMATION
  Report Type: 
  Country: None (occurrence: None)
  Receive Date: 20090519
  Receipt Date: 20090507
  Transmission Date: 20091009
  Serious: Yes (Other)
  Sender: FDA-Public Use
  Company Number: DE-PFIZER INC-2008098905

PATIENT
  Age: 45 Year

DRUGS (1)
  1. SOBELIN [Suspect]
     Indication: ANTIBIOTIC THERAPY
     Dosage: 300 MG, 3X/DAY
     Route: 048
     Dates: start: 20071030, end: 20071102

REACTIONS (1)
  - HEPATITIS [None]
